FAERS Safety Report 18207741 (Version 3)
Quarter: 2020Q4

REPORT INFORMATION
  Report Type: Spontaneous
  Country: US (occurrence: US)
  Receive Date: 20200828
  Receipt Date: 20201116
  Transmission Date: 20210113
  Serious: No
  Sender: FDA-Public Use
  Company Number: US-PFIZER INC-2020334254

PATIENT
  Age: 56 Year
  Sex: Female

DRUGS (1)
  1. IBRANCE [Suspect]
     Active Substance: PALBOCICLIB
     Indication: BREAST CANCER METASTATIC
     Dosage: 125 MG, CYCLIC (ONCE DAILY FOR 21D OF EVERY 28D CYCLE)(D FOR 21D OF EVERY 28 D CYCLE)
     Route: 048
     Dates: start: 20200708

REACTIONS (6)
  - Hot flush [Unknown]
  - Depression [Unknown]
  - Fatigue [Unknown]
  - Alopecia [Unknown]
  - Nausea [Unknown]
  - Affective disorder [Unknown]

NARRATIVE: CASE EVENT DATE: 2020
